FAERS Safety Report 5712266-6 (Version None)
Quarter: 2008Q2

REPORT INFORMATION
  Report Type: 
  Country: None (occurrence: None)
  Receive Date: 20080417
  Receipt Date: 20080408
  Transmission Date: 20081010
  Serious: Yes (Death, Hospitalization)
  Sender: FDA-Public Use
  Company Number: 2008BI007261

PATIENT
  Age: 67 Year
  Sex: Female

DRUGS (22)
  1. TYSABRI [Suspect]
     Indication: MULTIPLE SCLEROSIS
     Dosage: 300 MG;QM;IV
     Route: 042
     Dates: start: 20061014, end: 20080313
  2. ATIVAN [Concomitant]
  3. ULTRAM [Concomitant]
  4. KLOR-CON [Concomitant]
  5. PROTONIX [Concomitant]
  6. AMBIEN [Concomitant]
  7. ASCORBIC ACID [Concomitant]
  8. VITAMIN AND MINERAL SUPPLEMENT DAILY [Concomitant]
  9. ZANAFLEX [Concomitant]
  10. CLARINEX-D 12 HOUR [Concomitant]
  11. LOVENOX [Concomitant]
  12. NIFEREX [Concomitant]
  13. PLAVIX [Concomitant]
  14. BACLOFEN [Concomitant]
  15. LEVAQUIN [Concomitant]
  16. MIRALAX [Concomitant]
  17. MILK OF MAGNESIA [Concomitant]
  18. DARVOCET-N [Concomitant]
  19. MUCINEX [Concomitant]
  20. VALIUM [Concomitant]
  21. QUESTRAN [Concomitant]
  22. FLAGYL [Concomitant]

REACTIONS (11)
  - ALTERED STATE OF CONSCIOUSNESS [None]
  - BLOOD UREA INCREASED [None]
  - CARDIAC FAILURE CONGESTIVE [None]
  - CLOSTRIDIUM DIFFICILE COLITIS [None]
  - DYSPNOEA [None]
  - HYPERTENSION [None]
  - INFECTION [None]
  - PLEURAL EFFUSION [None]
  - PNEUMONIA ASPIRATION [None]
  - SINUS DISORDER [None]
  - URINARY TRACT INFECTION [None]
